FAERS Safety Report 12192030 (Version 2)
Quarter: 2016Q2

REPORT INFORMATION
  Report Type: Spontaneous
  Country: JP (occurrence: JP)
  Receive Date: 20160318
  Receipt Date: 20160502
  Transmission Date: 20160815
  Serious: Yes (Other)
  Sender: FDA-Public Use
  Company Number: JP-NOVOPROD-483328

PATIENT
  Age: 70 Year
  Sex: Male
  Weight: 52 kg

DRUGS (12)
  1. GLUCAGON G NOVO [Suspect]
     Active Substance: GLUCAGON
     Dosage: 0.6 MG, QD
     Route: 042
     Dates: start: 20160106, end: 20160106
  2. SILECE [Suspect]
     Active Substance: FLUNITRAZEPAM
     Indication: ENDOSCOPIC RETROGRADE CHOLANGIOPANCREATOGRAPHY
     Dosage: 1.0 MG, QD
     Route: 042
     Dates: start: 20151021
  3. FLUMAZENIL. [Suspect]
     Active Substance: FLUMAZENIL
     Indication: ENDOSCOPIC RETROGRADE CHOLANGIOPANCREATOGRAPHY
     Dosage: 0.5 MG, QD
     Route: 042
     Dates: start: 20151021
  4. FLUMAZENIL. [Suspect]
     Active Substance: FLUMAZENIL
     Dosage: 0.5 MG, QD
     Route: 042
     Dates: start: 20160106, end: 20160106
  5. MIYA-BM [Concomitant]
     Active Substance: CLOSTRIDIUM BUTYRICUM SPORES STRAIN M-55
     Dosage: UNK
     Route: 048
  6. ADALAT [Concomitant]
     Active Substance: NIFEDIPINE
     Dosage: 10 MG
     Route: 048
  7. OMEPRAZOLE. [Concomitant]
     Active Substance: OMEPRAZOLE
     Dosage: 20 MG, QD
     Route: 042
  8. GLUCAGON G NOVO [Suspect]
     Active Substance: GLUCAGON
     Indication: ENDOSCOPIC RETROGRADE CHOLANGIOPANCREATOGRAPHY
     Dosage: 0.8 MG, QD
     Route: 042
     Dates: start: 20151021
  9. SILECE [Suspect]
     Active Substance: FLUNITRAZEPAM
     Dosage: 0.5 MG, QD
     Route: 042
     Dates: start: 20160106, end: 20160106
  10. NEXIUM [Concomitant]
     Active Substance: ESOMEPRAZOLE MAGNESIUM
     Dosage: 20 MG, QD
     Route: 048
  11. VEEN D [Concomitant]
     Active Substance: CALCIUM CHLORIDE\DEXTROSE\POTASSIUM CHLORIDE\SODIUM ACETATE\SODIUM CHLORIDE
     Dosage: UNK
     Route: 042
  12. SULBACILLIN [Concomitant]
     Active Substance: AMPICILLIN SODIUM\SULBACTAM SODIUM
     Dosage: 1.5 G, QD
     Route: 042

REACTIONS (1)
  - Anaphylactoid reaction [Recovered/Resolved]

NARRATIVE: CASE EVENT DATE: 20160106
